FAERS Safety Report 6464516-9 (Version None)
Quarter: 2009Q4

REPORT INFORMATION
  Report Type: 
  Country: None (occurrence: None)
  Receive Date: 20091124
  Receipt Date: 20091109
  Transmission Date: 20100525
  Serious: Yes (Hospitalization)
  Sender: FDA-Public Use
  Company Number: JPI-P-009047

PATIENT
  Age: 52 Year
  Sex: Female
  Weight: 149.687 kg

DRUGS (22)
  1. XYREM [Suspect]
     Indication: CATAPLEXY
     Dosage: 4.5 GM (2.25 GM, 2 IN 1 D), ORAL; 9 GM (4.5 GM, 2 IN 1 D), ORAL
     Route: 048
     Dates: start: 20090701, end: 20090801
  2. XYREM [Suspect]
     Indication: CATAPLEXY
     Dosage: 4.5 GM (2.25 GM, 2 IN 1 D), ORAL; 9 GM (4.5 GM, 2 IN 1 D), ORAL
     Route: 048
     Dates: start: 20090801
  3. ALPRAZOLAM [Concomitant]
  4. IPRATROPIUM WITH ALBUTEROL [Concomitant]
  5. INSULIN [Concomitant]
  6. MODAFINIL [Concomitant]
  7. POTASSIUM [Concomitant]
  8. ISOSORBIDE [Concomitant]
  9. METOPROLOL [Concomitant]
  10. OXYCODONE AND ACETAMINOPHEN [Concomitant]
  11. GABAPENTIN [Concomitant]
  12. NITROGLYCERIN [Concomitant]
  13. SERTRALINE HCL [Concomitant]
  14. RANITIDINE [Concomitant]
  15. CLOPIDOGREL [Concomitant]
  16. FLUTICASONE [Concomitant]
  17. TIOTROPIUM BROMIDE [Concomitant]
  18. MAGNESIUM OXIDE [Concomitant]
  19. LISINOPRIL [Concomitant]
  20. METHYLPHENIDATE HCL [Concomitant]
  21. LOPERAMIDE HYDROCHLORIDE [Concomitant]
  22. OXYGEN [Concomitant]

REACTIONS (5)
  - CARDIAC DISORDER [None]
  - DYSPHAGIA [None]
  - DYSPNOEA [None]
  - NIGHT SWEATS [None]
  - THROAT TIGHTNESS [None]
